FAERS Safety Report 9054509 (Version 1)
Quarter: 2013Q1

REPORT INFORMATION
  Report Type: Spontaneous
  Country: US (occurrence: US)
  Receive Date: 20130208
  Receipt Date: 20130208
  Transmission Date: 20140127
  Serious: No
  Sender: FDA-Public Use
  Company Number: US-GLAXOSMITHKLINE-A0999789B

PATIENT
  Sex: Female

DRUGS (2)
  1. PAXIL [Suspect]
     Indication: AFFECTIVE DISORDER
     Route: 048
  2. NO CONCURRENT MEDICATIONS [Concomitant]

REACTIONS (1)
  - Premature baby [Unknown]
